FAERS Safety Report 21174966 (Version 1)
Quarter: 2022Q3

REPORT INFORMATION
  Report Type: Spontaneous
  Country: TW (occurrence: TW)
  Receive Date: 20220805
  Receipt Date: 20220805
  Transmission Date: 20221026
  Serious: Yes (Hospitalization)
  Sender: FDA-Public Use
  Company Number: TW-BIOGEN-2022BI01144713

PATIENT
  Age: 3 Year

DRUGS (1)
  1. SPINRAZA [Suspect]
     Active Substance: NUSINERSEN
     Indication: Spinal muscular atrophy
     Dosage: 4 LOADING DOSES ON DAY 0, 14, 28, AND 63. MAINTENANCE DOSE ADMINISTERED ONCE EVERY 4 MONTHS THERE...
     Route: 050

REACTIONS (2)
  - Pneumonia [Unknown]
  - SARS-CoV-2 test positive [Unknown]
